FAERS Safety Report 20157728 (Version 6)
Quarter: 2022Q1

REPORT INFORMATION
  Report Type: Report from Study
  Country: GB (occurrence: GB)
  Receive Date: 20211207
  Receipt Date: 20220326
  Transmission Date: 20220423
  Serious: Yes (Hospitalization, Other)
  Sender: FDA-Public Use
  Company Number: GB-NOVARTISPH-NVSC2021GB274170

PATIENT
  Age: 3 Year
  Sex: Male

DRUGS (1)
  1. ZOLGENSMA [Suspect]
     Active Substance: ONASEMNOGENE ABEPARVOVEC-XIOI
     Indication: Spinal muscular atrophy
     Dosage: UNK, ONCE/SINGLE
     Route: 042
     Dates: start: 20211123, end: 20211123

REACTIONS (9)
  - Rhinovirus infection [Recovering/Resolving]
  - Respiratory syncytial virus infection [Recovering/Resolving]
  - Pyrexia [Recovered/Resolved]
  - Bradycardia [Not Recovered/Not Resolved]
  - Choking [Unknown]
  - Dysphagia [Recovering/Resolving]
  - Salivary hypersecretion [Recovering/Resolving]
  - Liver function test increased [Recovering/Resolving]
  - Drooling [Unknown]

NARRATIVE: CASE EVENT DATE: 20211126
